FAERS Safety Report 20778496 (Version 3)
Quarter: 2024Q2

REPORT INFORMATION
  Report Type: Spontaneous
  Country: US (occurrence: US)
  Receive Date: 20220503
  Receipt Date: 20240503
  Transmission Date: 20240716
  Serious: Yes (Other)
  Sender: FDA-Public Use
  Company Number: US-AMNEAL PHARMACEUTICALS-2021-AMRX-03418

PATIENT
  Age: 0 Year
  Sex: Male
  Weight: 13.016 kg

DRUGS (4)
  1. VIGABATRIN [Suspect]
     Active Substance: VIGABATRIN
     Indication: Infantile spasms
     Dosage: 500 MILLIGRAM (10 ML), EVERY 12HR
     Route: 048
     Dates: start: 20210215
  2. VIGABATRIN [Suspect]
     Active Substance: VIGABATRIN
     Indication: Lennox-Gastaut syndrome
     Dosage: 750 MG, TWICE A DAY
     Route: 048
  3. KEPPRA [Concomitant]
     Active Substance: LEVETIRACETAM
     Indication: Product used for unknown indication
     Dosage: UNK
     Route: 065
  4. EPIDIOLEX [Concomitant]
     Active Substance: CANNABIDIOL
     Indication: Product used for unknown indication
     Route: 065

REACTIONS (6)
  - Change in seizure presentation [Unknown]
  - Crying [Unknown]
  - Croup infectious [Not Recovered/Not Resolved]
  - Pyrexia [Unknown]
  - Sleep disorder [Unknown]
  - Influenza [Unknown]

NARRATIVE: CASE EVENT DATE: 20210817
